FAERS Safety Report 9127364 (Version 1)
Quarter: 2013Q1

REPORT INFORMATION
  Report Type: Spontaneous
  Country: US (occurrence: US)
  Receive Date: 20130122
  Receipt Date: 20130122
  Transmission Date: 20140127
  Serious: Yes (Other)
  Sender: FDA-Public Use
  Company Number: US-RB-044190-12

PATIENT
  Age: 19 Year
  Sex: Male

DRUGS (1)
  1. SUBOXONE FILM [Suspect]
     Indication: PRODUCT USED FOR UNKNOWN INDICATION
     Dosage: SUBOXONE FILM
     Route: 060
     Dates: start: 201207, end: 201209

REACTIONS (11)
  - Underdose [Unknown]
  - Drug withdrawal syndrome [Recovered/Resolved]
  - Intentional overdose [Recovered/Resolved]
  - Cold sweat [Recovered/Resolved]
  - Tremor [Recovered/Resolved]
  - Abdominal pain upper [Recovered/Resolved]
  - Back pain [Recovered/Resolved]
  - Asthenia [Recovered/Resolved]
  - Blood pressure immeasurable [Recovered/Resolved]
  - Pulse absent [Recovered/Resolved]
  - Streptococcal infection [Unknown]
